FAERS Safety Report 8963735 (Version 2)
Quarter: 2012Q4

REPORT INFORMATION
  Report Type: 
  Country: NL (occurrence: NL)
  Receive Date: 20121213
  Receipt Date: 20121220
  Transmission Date: 20130627
  Serious: Yes (Life-Threatening)
  Sender: FDA-Public Use
  Company Number: NL-TEVA-372064ISR

PATIENT
  Age: 1 None
  Sex: Male
  Weight: 13 kg

DRUGS (1)
  1. AMOXICILLINE [Suspect]
     Indication: EAR INFECTION
     Dosage: 6 ml
     Route: 048
     Dates: start: 20121113, end: 20121119

REACTIONS (3)
  - Dyspnoea [Recovered/Resolved]
  - Pyrexia [Recovered/Resolved]
  - Urticaria [Recovered/Resolved]
